FAERS Safety Report 7062943-2 (Version None)
Quarter: 2010Q4

REPORT INFORMATION
  Report Type: 
  Country: None (occurrence: None)
  Receive Date: 20101026
  Receipt Date: 20100402
  Transmission Date: 20110411
  Serious: Yes (Other)
  Sender: FDA-Public Use
  Company Number: US-PFIZER INC-2010024286

PATIENT
  Sex: Male
  Weight: 72.562 kg

DRUGS (4)
  1. LIPITOR [Suspect]
     Indication: BLOOD CHOLESTEROL INCREASED
     Dosage: 10 MG, 1X/DAY
     Route: 048
     Dates: start: 20040101
  2. BENICAR HCT [Concomitant]
     Indication: HYPERTENSION
     Dosage: 20/12.5MG 1X/DAY
     Route: 048
  3. ACETYLSALICYLIC ACID [Concomitant]
     Indication: CARDIAC DISORDER
     Dosage: 81 MG, UNK
     Route: 048
  4. FISH OIL [Concomitant]
     Dosage: UNK

REACTIONS (3)
  - DIZZINESS [None]
  - EXCESSIVE EYE BLINKING [None]
  - FATIGUE [None]
